FAERS Safety Report 9786998 (Version 1)
Quarter: 2013Q4

REPORT INFORMATION
  Report Type: Spontaneous
  Country: GB (occurrence: GB)
  Receive Date: 20131227
  Receipt Date: 20131227
  Transmission Date: 20140711
  Serious: Yes (Other)
  Sender: FDA-Public Use
  Company Number: PHHY2013GB149788

PATIENT
  Age: 75 Year
  Sex: Male
  Weight: 96 kg

DRUGS (6)
  1. INDAPAMIDE [Suspect]
     Route: 048
     Dates: start: 20131101
  2. CLOPIDOGREL [Concomitant]
     Dates: start: 20130814, end: 20131205
  3. LOSARTAN [Concomitant]
     Dates: start: 20130822, end: 20131105
  4. SIMVASTATIN [Concomitant]
     Dates: start: 20130904
  5. AMLODIPINE [Concomitant]
     Dates: start: 20130904
  6. HUMALOG [Concomitant]
     Dates: start: 20130913, end: 20131011

REACTIONS (1)
  - Influenza like illness [Recovered/Resolved]
